FAERS Safety Report 5046996-9 (Version None)
Quarter: 2006Q2

REPORT INFORMATION
  Report Type: 
  Country: None (occurrence: None)
  Receive Date: 20060630
  Receipt Date: 20060620
  Transmission Date: 20061013
  Serious: Yes (Other)
  Sender: FDA-Public Use
  Company Number: BMRN-2006-029

PATIENT
  Sex: 0

DRUGS (2)
  1. ORAPRED [Suspect]
     Indication: AUTOIMMUNE DISORDER
  2. ORAPRED [Suspect]
     Indication: PANCREATITIS

REACTIONS (1)
  - RECTAL CANCER [None]
